FAERS Safety Report 20748103 (Version 1)
Quarter: 2022Q2

REPORT INFORMATION
  Report Type: Spontaneous
  Country: US (occurrence: US)
  Receive Date: 20220426
  Receipt Date: 20220426
  Transmission Date: 20220720
  Serious: Yes (Hospitalization, Other)
  Sender: FDA-Public Use
  Company Number: US-BRISTOL-MYERS SQUIBB COMPANY-2022-026389

PATIENT
  Age: 74 Year
  Sex: Male
  Weight: 65.77 kg

DRUGS (1)
  1. POMALYST [Suspect]
     Active Substance: POMALIDOMIDE
     Indication: Plasma cell myeloma
     Dosage: DOSE : UNAVAILABLE;     FREQ : DAILY FOR 21 DAYS THEN OFF FOR 7 DAYS
     Route: 048

REACTIONS (2)
  - Haematochezia [Unknown]
  - Haematuria [Unknown]

NARRATIVE: CASE EVENT DATE: 20220411
